FAERS Safety Report 13698747 (Version 1)
Quarter: 2017Q2

REPORT INFORMATION
  Report Type: Spontaneous
  Country: US (occurrence: US)
  Receive Date: 20170627
  Receipt Date: 20170627
  Transmission Date: 20170830
  Serious: Yes (Disabling)
  Sender: FDA-Public Use
  Company Number: None

PATIENT
  Age: 38 Year
  Sex: Male
  Weight: 93.6 kg

DRUGS (2)
  1. AXE EXCITE ANTIPERSPIRANT AND DEODORANT [Suspect]
     Active Substance: ALUMINUM ZIRCONIUM TETRACHLOROHYDREX GLY
     Indication: SKIN ODOUR ABNORMAL
     Dosage: QUANTITY:3 SWIPES, (EACH ARM);?
     Route: 061
  2. AXE EXCITE ANTIPERSPIRANT AND DEODORANT [Suspect]
     Active Substance: ALUMINUM ZIRCONIUM TETRACHLOROHYDREX GLY
     Indication: HYPERHIDROSIS
     Dosage: QUANTITY:3 SWIPES, (EACH ARM);?
     Route: 061

REACTIONS (4)
  - Application site rash [None]
  - Application site pruritus [None]
  - Application site pain [None]
  - Application site erythema [None]

NARRATIVE: CASE EVENT DATE: 20170627
